FAERS Safety Report 6304574-5 (Version None)
Quarter: 2009Q3

REPORT INFORMATION
  Report Type: 
  Country: None (occurrence: None)
  Receive Date: 20090811
  Receipt Date: 20090807
  Transmission Date: 20100115
  Serious: Yes (Hospitalization)
  Sender: FDA-Public Use
  Company Number: FR-WYE-G04208909

PATIENT
  Sex: Female

DRUGS (8)
  1. TAZOCILLINE [Suspect]
     Route: 042
     Dates: start: 20090717
  2. CIFLOX [Suspect]
     Route: 048
     Dates: start: 20090717
  3. FORADIL [Concomitant]
     Dosage: UNKNOWN
  4. STILNOX [Suspect]
     Route: 048
     Dates: start: 20090718
  5. BRICANYL [Concomitant]
     Dosage: UNKNOWN
  6. ATROVENT [Concomitant]
     Dosage: UNKNOWN
  7. PYOSTACINE [Suspect]
     Route: 048
     Dates: start: 20090716, end: 20090716
  8. LOVENOX [Suspect]
     Route: 058
     Dates: start: 20090717

REACTIONS (3)
  - EOSINOPHIL PERCENTAGE INCREASED [None]
  - LEUKOCYTOCLASTIC VASCULITIS [None]
  - PLATELET COUNT INCREASED [None]
